FAERS Safety Report 24788587 (Version 2)
Quarter: 2025Q1

REPORT INFORMATION
  Report Type: Spontaneous
  Country: US (occurrence: US)
  Receive Date: 20241230
  Receipt Date: 20250108
  Transmission Date: 20250409
  Serious: Yes (Life-Threatening, Hospitalization, Other)
  Sender: ACCORD
  Company Number: US-Accord-461925

PATIENT
  Age: 31 Year
  Sex: Male
  Weight: 56 kg

DRUGS (20)
  1. TEMOZOLOMIDE [Suspect]
     Active Substance: TEMOZOLOMIDE
     Indication: Ewing^s sarcoma
     Dates: start: 20220927, end: 20220927
  2. IRINOTECAN [Suspect]
     Active Substance: IRINOTECAN
     Indication: Ewing^s sarcoma
     Route: 042
     Dates: start: 20220927, end: 20220927
  3. VITAMIN C [Concomitant]
     Active Substance: ASCORBIC ACID
     Dates: start: 20201231
  4. SULFAMETHOXAZOLE\TRIMETHOPRIM [Concomitant]
     Active Substance: SULFAMETHOXAZOLE\TRIMETHOPRIM
     Dates: start: 20170719
  5. MUPIROCIN [Concomitant]
     Active Substance: MUPIROCIN
     Dates: start: 20220621
  6. ZOFRAN [Concomitant]
     Active Substance: ONDANSETRON HYDROCHLORIDE
     Dates: start: 20220810
  7. PROTONIX [Concomitant]
     Active Substance: PANTOPRAZOLE SODIUM
     Dates: start: 20210115
  8. COMPAZINE [Concomitant]
     Active Substance: PROCHLORPERAZINE MALEATE
     Dates: start: 20220810
  9. ATROPINE\DIPHENOXYLATE [Concomitant]
     Active Substance: ATROPINE\DIPHENOXYLATE
     Dates: start: 20220705
  10. CHOLESTYRAMINE [Concomitant]
     Active Substance: CHOLESTYRAMINE
     Dates: start: 20221013
  11. IMODIUM [Concomitant]
     Active Substance: LOPERAMIDE HYDROCHLORIDE
     Indication: Diarrhoea
     Dates: start: 20221128
  12. ZYPREXA [Concomitant]
     Active Substance: OLANZAPINE
     Dates: start: 20221110, end: 20230313
  13. MAGNESIUM SULFATE [Concomitant]
     Active Substance: MAGNESIUM SULFATE
     Dates: start: 20221128, end: 20221128
  14. BACTROBAN [Concomitant]
     Active Substance: MUPIROCIN CALCIUM
     Dates: start: 2022
  15. GENTAMICIN [Concomitant]
     Active Substance: GENTAMICIN
     Dates: start: 2022
  16. TYLENOL [Concomitant]
     Active Substance: ACETAMINOPHEN
     Dates: start: 2022, end: 20230214
  17. NEULASTA [Concomitant]
     Active Substance: PEGFILGRASTIM
     Dates: start: 20221203
  18. IRINOTECAN [Suspect]
     Active Substance: IRINOTECAN
     Indication: Ewing^s sarcoma
     Route: 042
     Dates: start: 20221202, end: 20221202
  19. TEMOZOLOMIDE [Suspect]
     Active Substance: TEMOZOLOMIDE
     Indication: Ewing^s sarcoma
     Dates: start: 20221201, end: 20221201
  20. ATROPINE\DIPHENOXYLATE [Concomitant]
     Active Substance: ATROPINE\DIPHENOXYLATE
     Indication: Diarrhoea
     Dates: start: 20220705

REACTIONS (4)
  - Hyponatraemia [Recovered/Resolved]
  - Dehydration [Recovered/Resolved]
  - Hypokalaemia [Not Recovered/Not Resolved]
  - Hypomagnesaemia [Not Recovered/Not Resolved]

NARRATIVE: CASE EVENT DATE: 20221128
